FAERS Safety Report 5674598-X (Version None)
Quarter: 2008Q1

REPORT INFORMATION
  Report Type: 
  Country: None (occurrence: None)
  Receive Date: 20080319
  Receipt Date: 20080319
  Transmission Date: 20080703
  Serious: No
  Sender: FDA-Public Use
  Company Number: None

PATIENT
  Sex: Female
  Weight: 63.5036 kg

DRUGS (1)
  1. TRAVATAN [Suspect]
     Dosage: ONE QD PO
     Route: 048

REACTIONS (9)
  - ASTHENIA [None]
  - BACK PAIN [None]
  - EYE DISORDER [None]
  - GINGIVAL DISORDER [None]
  - HEADACHE [None]
  - NASOPHARYNGITIS [None]
  - PAIN IN EXTREMITY [None]
  - PELVIC PAIN [None]
  - RENAL PAIN [None]
